FAERS Safety Report 5637571-3 (Version None)
Quarter: 2008Q1

REPORT INFORMATION
  Report Type: 
  Country: None (occurrence: None)
  Receive Date: 20080225
  Receipt Date: 20080215
  Transmission Date: 20080703
  Serious: Yes (Other)
  Sender: FDA-Public Use
  Company Number: US-ABBOTT-07P-163-0421763-00

PATIENT
  Sex: Female
  Weight: 89.438 kg

DRUGS (6)
  1. HUMIRA [Suspect]
     Indication: CROHN'S DISEASE
     Route: 058
     Dates: start: 20071009, end: 20071009
  2. HUMIRA [Suspect]
     Route: 058
     Dates: start: 20071022, end: 20071022
  3. HUMIRA [Suspect]
     Route: 058
     Dates: start: 20071001
  4. AZATHIOPRINE [Concomitant]
     Indication: CROHN'S DISEASE
     Route: 048
  5. BUDESONIDE [Concomitant]
     Indication: CROHN'S DISEASE
     Route: 048
  6. CONTRACEPTIVES NOS [Concomitant]
     Indication: PROPHYLAXIS
     Route: 048

REACTIONS (3)
  - BLINDNESS [None]
  - INJECTION SITE BRUISING [None]
  - MIGRAINE [None]
